FAERS Safety Report 18164068 (Version 2)
Quarter: 2020Q3

REPORT INFORMATION
  Report Type: Spontaneous
  Country: US (occurrence: US)
  Receive Date: 20200818
  Receipt Date: 20200818
  Transmission Date: 20201103
  Serious: Yes (Other)
  Sender: FDA-Public Use
  Company Number: US-OTSUKA-2018_020209

PATIENT
  Sex: Female

DRUGS (3)
  1. ARIPIPRAZOLE. [Concomitant]
     Active Substance: ARIPIPRAZOLE
     Indication: PRODUCT USED FOR UNKNOWN INDICATION
     Dosage: UNK
     Route: 065
     Dates: start: 201603, end: 201609
  2. ABILIFY [Suspect]
     Active Substance: ARIPIPRAZOLE
     Indication: MAJOR DEPRESSION
  3. ABILIFY [Suspect]
     Active Substance: ARIPIPRAZOLE
     Indication: BIPOLAR DISORDER
     Dosage: 10 MG TO 30 MG, QD
     Route: 065
     Dates: start: 200507, end: 201606

REACTIONS (15)
  - Neuropsychiatric symptoms [Unknown]
  - Gambling disorder [Recovered/Resolved]
  - Homeless [Unknown]
  - Emotional distress [Unknown]
  - Suicidal ideation [Recovered/Resolved]
  - Mental disorder [Unknown]
  - Bankruptcy [Unknown]
  - Eating disorder [Recovered/Resolved]
  - Condition aggravated [Recovered/Resolved]
  - Economic problem [Unknown]
  - Suicide attempt [Recovered/Resolved]
  - Injury [Unknown]
  - Obsessive-compulsive disorder [Recovered/Resolved]
  - Sexual dysfunction [Recovered/Resolved]
  - Compulsive shopping [Recovered/Resolved]

NARRATIVE: CASE EVENT DATE: 2006
